FAERS Safety Report 7433270-6 (Version None)
Quarter: 2011Q2

REPORT INFORMATION
  Report Type: 
  Country: None (occurrence: None)
  Receive Date: 20110422
  Receipt Date: 20110415
  Transmission Date: 20111010
  Serious: No
  Sender: FDA-Public Use
  Company Number: US-B.I. PHARMACEUTICALS,INC./RIDGEFIELD-2010-BP-13355BP

PATIENT
  Sex: Female

DRUGS (15)
  1. 3 HEART MEDICATIONS [Concomitant]
  2. TRAZODONE HCL [Concomitant]
  3. VIT B [Concomitant]
     Indication: VITAMIN B COMPLEX DEFICIENCY
  4. PRADAXA [Suspect]
     Indication: CEREBROVASCULAR ACCIDENT
  5. SIMVASTATIN [Concomitant]
  6. LEXAPRO [Concomitant]
  7. PRADAXA [Suspect]
     Indication: PULMONARY EMBOLISM
     Dosage: 300 MG
     Route: 048
     Dates: start: 20101116
  8. DICYCLOMINE [Concomitant]
     Indication: ABDOMINAL PAIN
  9. PRADAXA [Suspect]
     Indication: DRUG THERAPY CHANGED
  10. DILTIAZEM [Concomitant]
  11. DIGOXIN [Concomitant]
  12. CARDIZEM [Concomitant]
  13. METOPROLOL [Concomitant]
  14. VITAMIN D [Concomitant]
  15. ZOCOR [Concomitant]

REACTIONS (2)
  - ABDOMINAL DISCOMFORT [None]
  - MUSCULOSKELETAL CHEST PAIN [None]
